FAERS Safety Report 6856342-3 (Version None)
Quarter: 2010Q3

REPORT INFORMATION
  Report Type: 
  Country: None (occurrence: None)
  Receive Date: 20100715
  Receipt Date: 20100715
  Transmission Date: 20110219
  Serious: Yes (Disabling)
  Sender: FDA-Public Use
  Company Number: None

PATIENT
  Age: 75 Year
  Sex: Female
  Weight: 90.7194 kg

DRUGS (1)
  1. AMLODIPINE BESYLATE [Suspect]
     Indication: HYPERTENSION
     Dosage: 5MG 1 PER DAY PO
     Route: 048
     Dates: start: 20100515, end: 20100615

REACTIONS (3)
  - BALANCE DISORDER [None]
  - BLOOD PRESSURE DECREASED [None]
  - PRODUCT SUBSTITUTION ISSUE [None]
